FAERS Safety Report 22207802 (Version 1)
Quarter: 2023Q2

REPORT INFORMATION
  Report Type: Report from Study
  Country: CA (occurrence: CA)
  Receive Date: 20230413
  Receipt Date: 20230413
  Transmission Date: 20230721
  Serious: Yes (Hospitalization)
  Sender: FDA-Public Use
  Company Number: CA-JNJFOC-20230233981

PATIENT
  Age: 61 Year
  Sex: Female

DRUGS (1)
  1. REMICADE [Suspect]
     Active Substance: INFLIXIMAB
     Indication: Colitis ulcerative
     Dosage: EXPIRY DATE-31-JUL-2025?THERAPY START DATE ALSO GIVEN AS 14-FEB-2023.
     Route: 042
     Dates: start: 20230103

REACTIONS (2)
  - Urinary bladder suspension [Recovering/Resolving]
  - Hysterectomy [Recovering/Resolving]

NARRATIVE: CASE EVENT DATE: 20230316
